FAERS Safety Report 8154523 (Version 7)
Quarter: 2012Q4

REPORT INFORMATION
  Report Type: 
  Country: JP (occurrence: JP)
  Receive Date: 20110923
  Receipt Date: 20121113
  Transmission Date: 20130627
  Serious: Yes (Death, Life-Threatening, Hospitalization, Other)
  Sender: FDA-Public Use
  Company Number: PHHY2011JP84121

PATIENT
  Age: 68 None
  Sex: Male
  Weight: 64 kg

DRUGS (11)
  1. ZOMETA [Suspect]
     Indication: METASTASES TO BONE
     Dosage: 4 mg, UNK
     Route: 041
     Dates: start: 20100726
  2. ZOMETA [Suspect]
     Dosage: 4 mg, UNK
     Route: 041
     Dates: end: 20110519
  3. DOCETAXEL [Suspect]
     Dates: start: 20110510
  4. TAXOTERE [Concomitant]
     Indication: PROSTATE CANCER
     Dosage: UNK UKN, UNK
     Route: 041
     Dates: start: 20110510
  5. LEUPLIN [Concomitant]
     Indication: PROSTATE CANCER
     Dosage: UNK UKN, UNK
     Route: 058
     Dates: start: 200909
  6. DECADRON [Concomitant]
     Indication: PROSTATE CANCER
     Dosage: 1 mg, UNK
     Route: 048
     Dates: start: 20101108, end: 20110627
  7. TRAMAL [Concomitant]
     Indication: PAIN
     Dosage: 75 mg, UNK
     Route: 048
     Dates: start: 20101206, end: 20110520
  8. ADALAT CR [Concomitant]
     Indication: HYPERTENSION
     Dosage: 10 mg, UNK
     Route: 048
     Dates: start: 20110516
  9. MICARDIS [Concomitant]
     Indication: HYPERTENSION
     Dosage: 40 mg, UNK
     Dates: start: 20110516
  10. LIPITOR [Concomitant]
     Indication: HYPERLIPIDAEMIA
     Dosage: 5 mg, UNK
     Route: 048
     Dates: start: 20110516
  11. AMARYL [Concomitant]
     Indication: DIABETES MELLITUS
     Dosage: 1 mg, UNK
     Route: 048
     Dates: start: 20110516

REACTIONS (18)
  - Pharyngeal abscess [Fatal]
  - Cellulitis pharyngeal [Fatal]
  - Bronchostenosis [Fatal]
  - Tracheal stenosis [Fatal]
  - Tracheal oedema [Fatal]
  - Mediastinitis [Fatal]
  - Dyspnoea [Fatal]
  - Osteonecrosis of jaw [Fatal]
  - Exposed bone in jaw [Fatal]
  - Swelling [Fatal]
  - Pain in jaw [Fatal]
  - Metastases to liver [Fatal]
  - Hepatic failure [Fatal]
  - Hepatic enzyme increased [Fatal]
  - Renal failure acute [Unknown]
  - Renal pain [Unknown]
  - Pancytopenia [Unknown]
  - Haemoglobin decreased [Unknown]
